FAERS Safety Report 22159239 (Version 1)
Quarter: 2023Q1

REPORT INFORMATION
  Report Type: Spontaneous
  Country: US (occurrence: US)
  Receive Date: 20230331
  Receipt Date: 20230331
  Transmission Date: 20230418
  Serious: Yes (Other)
  Sender: FDA-Public Use
  Company Number: US-TENSHI KAIZEN PRIVATE LIMITED-2023TK000009

PATIENT
  Age: 49 Year
  Sex: Male

DRUGS (3)
  1. LORATADINE [Suspect]
     Active Substance: LORATADINE
     Indication: Urticaria
     Dosage: 20 MG
     Route: 065
  2. EXCEDRIN [Concomitant]
     Active Substance: ACETAMINOPHEN\ASPIRIN\CAFFEINE
     Indication: Migraine
     Dosage: UNKNOWN
     Route: 065
  3. ACETAMINOPHEN [Concomitant]
     Active Substance: ACETAMINOPHEN
     Indication: Migraine
     Dosage: 250 MILLIGRAM, HE TOLERATED FIRST DOSE OF 250MG PARACETAMOL WELL IN ORALCHALLENGE AND RECEIVED SECON
     Route: 048

REACTIONS (1)
  - Drug ineffective for unapproved indication [Unknown]
